FAERS Safety Report 9192628 (Version 1)
Quarter: 2013Q1

REPORT INFORMATION
  Report Type: Spontaneous
  Country: US (occurrence: None)
  Receive Date: 20120703
  Receipt Date: 20120703
  Transmission Date: 20140127
  Serious: No
  Sender: FDA-Public Use
  Company Number: PHEH2012US005369

PATIENT
  Age: 51 Year
  Sex: Female

DRUGS (4)
  1. GILENYA (FTY) CAPSULE, 0.5 MG [Suspect]
     Indication: MULTIPLE SCLEROSIS
     Route: 048
     Dates: start: 20111024
  2. LODINE (ETODOLAC) [Concomitant]
  3. BACLOFEN (BACLOFEN) [Concomitant]
  4. ATENOLOL (ATENOLOL) [Concomitant]

REACTIONS (1)
  - Bone pain [None]
